FAERS Safety Report 24406746 (Version 1)
Quarter: 2024Q4

REPORT INFORMATION
  Report Type: Spontaneous
  Country: US (occurrence: None)
  Receive Date: 20241007
  Receipt Date: 20241007
  Transmission Date: 20250115
  Serious: Yes (Hospitalization)
  Sender: Public
  Company Number: None

PATIENT
  Sex: Female

DRUGS (3)
  1. ADCIRCA [Suspect]
     Active Substance: TADALAFIL
     Indication: Pulmonary arterial hypertension
     Dosage: FREQUENCY : DAILY;?
     Route: 048
     Dates: start: 202201
  2. UPTRAVI [Concomitant]
  3. OPSUMIT [Concomitant]

REACTIONS (6)
  - Arthritis infective [None]
  - Fall [None]
  - Blood pressure inadequately controlled [None]
  - Peripheral swelling [None]
  - Joint swelling [None]
  - Peripheral swelling [None]
